FAERS Safety Report 12924354 (Version 1)
Quarter: 2016Q4

REPORT INFORMATION
  Report Type: Spontaneous
  Country: GR (occurrence: GR)
  Receive Date: 20161109
  Receipt Date: 20161109
  Transmission Date: 20170207
  Serious: Yes (Other)
  Sender: FDA-Public Use
  Company Number: PHHY2016GR152534

PATIENT
  Age: 51 Year
  Sex: Male

DRUGS (3)
  1. BEVACIZUMAB [Concomitant]
     Active Substance: BEVACIZUMAB
     Indication: METASTATIC RENAL CELL CARCINOMA
     Dosage: UNK
     Route: 065
     Dates: start: 201305, end: 201310
  2. ZOLEDRONIC ACID [Suspect]
     Active Substance: ZOLEDRONIC ACID
     Indication: PRODUCT USED FOR UNKNOWN INDICATION
     Dosage: UNK (2 INJECTIONS)
     Route: 065
     Dates: start: 201307
  3. TEMSIROLIMUS [Concomitant]
     Active Substance: TEMSIROLIMUS
     Indication: METASTATIC RENAL CELL CARCINOMA
     Dosage: UNK
     Route: 065
     Dates: start: 201305, end: 201310

REACTIONS (11)
  - Stomatitis [Unknown]
  - Tooth loss [Unknown]
  - Pain [Unknown]
  - Oral infection [Unknown]
  - Osteonecrosis of jaw [Unknown]
  - Dental fistula [Unknown]
  - Jaw fracture [Unknown]
  - Gingival bleeding [Unknown]
  - Exposed bone in jaw [Unknown]
  - Purulence [Unknown]
  - Noninfective gingivitis [Unknown]
